FAERS Safety Report 9724759 (Version 3)
Quarter: 2014Q1

REPORT INFORMATION
  Report Type: Report from Study
  Country: ES (occurrence: ES)
  Receive Date: 20131202
  Receipt Date: 20140212
  Transmission Date: 20141002
  Serious: Yes (Death, Life-Threatening, Hospitalization)
  Sender: FDA-Public Use
  Company Number: ES-TEVA-405771USA

PATIENT
  Age: 74 Year
  Sex: Male

DRUGS (14)
  1. BENDAMUSTINE [Suspect]
     Indication: PLASMA CELL MYELOMA
     Route: 042
     Dates: start: 20130221, end: 20130222
  2. CISPLATIN [Suspect]
     Indication: PLASMA CELL MYELOMA
     Dosage: REGIMEN #1
     Dates: start: 20130313, end: 20130412
  3. CISPLATIN [Suspect]
     Dosage: REGIMEN #2
     Dates: start: 20130416, end: 20130426
  4. VELCADE [Suspect]
     Indication: PLASMA CELL MYELOMA
     Dosage: REGIMEN #2
     Dates: start: 20130313, end: 20130412
  5. VELCADE [Suspect]
     Dosage: REGIMEN #3
     Dates: start: 20130416, end: 20130426
  6. LENALIDOMIDE [Suspect]
     Indication: PLASMA CELL MYELOMA
     Dosage: REGIMEN #6
     Dates: start: 20130313, end: 20130412
  7. LENALIDOMIDE [Suspect]
     Dosage: REGIMEN #6
     Dates: start: 20130416, end: 20130426
  8. ADRIAMYCIN [Suspect]
     Indication: PLASMA CELL MYELOMA
     Dosage: REGIMEN #1
     Dates: start: 20130313, end: 20130412
  9. ADRIAMYCIN [Suspect]
     Dosage: REGIMEN #2
     Dates: start: 20130416, end: 20130426
  10. APO-PREDNISONE [Suspect]
     Indication: PLASMA CELL MYELOMA
     Dosage: REGIMEN #3
     Dates: start: 20130221, end: 20130222
  11. ACYCLOVIR [Concomitant]
     Indication: PRODUCT USED FOR UNKNOWN INDICATION
     Dates: start: 20120715
  12. BACTRIM [Concomitant]
     Indication: PRODUCT USED FOR UNKNOWN INDICATION
     Dates: start: 20110906
  13. LEVOFLOXACIN [Concomitant]
     Dates: start: 20130209
  14. EPOETIN BETA [Concomitant]
     Dates: start: 20121114

REACTIONS (4)
  - Encephalopathy [Fatal]
  - Toxicity to various agents [Recovered/Resolved]
  - Aplasia [Recovered/Resolved]
  - Fatigue [Recovered/Resolved]
